FAERS Safety Report 4751036-2 (Version None)
Quarter: 2005Q3

REPORT INFORMATION
  Report Type: 
  Country: None (occurrence: None)
  Receive Date: 20050822
  Receipt Date: 20050812
  Transmission Date: 20060218
  Serious: Yes (Hospitalization)
  Sender: FDA-Public Use
  Company Number: CERZ-10955

PATIENT
  Age: 58 Year
  Sex: Female
  Weight: 76.6579 kg

DRUGS (4)
  1. CEREZYME [Suspect]
     Indication: GAUCHER'S DISEASE
     Dosage: 1000 UNITS Q2WKS IV
     Route: 042
     Dates: start: 19950101
  2. MAXZIDE [Suspect]
     Indication: HYPERTENSION
     Dosage: 1 TAB QD
     Dates: start: 19980101, end: 20050715
  3. MAXZIDE [Concomitant]
  4. PAXIL [Concomitant]

REACTIONS (4)
  - APPENDICEAL ABSCESS [None]
  - BLOOD POTASSIUM DECREASED [None]
  - PARKINSON'S DISEASE [None]
  - POLLAKIURIA [None]
